FAERS Safety Report 8073905-0 (Version None)
Quarter: 2012Q1

REPORT INFORMATION
  Report Type: 
  Country: None (occurrence: None)
  Receive Date: 20120126
  Receipt Date: 20120125
  Transmission Date: 20120608
  Serious: Yes (Life-Threatening)
  Sender: FDA-Public Use
  Company Number: JP-TEVA-316728ISR

PATIENT
  Age: 70 Year
  Sex: Male

DRUGS (3)
  1. CISPLATIN [Suspect]
     Indication: GASTRIC CANCER
  2. DOCETAXEL [Suspect]
     Indication: GASTRIC CANCER
  3. S-1 (GIMERACIL, OTERACIL POTASSIUM, TEGAFUR) [Suspect]
     Indication: GASTRIC CANCER
     Dosage: REGIMEN #1

REACTIONS (3)
  - TUMOUR NECROSIS [None]
  - GASTRIC PERFORATION [None]
  - INFECTIOUS PERITONITIS [None]
